FAERS Safety Report 11190384 (Version 1)
Quarter: 2015Q2

REPORT INFORMATION
  Report Type: Spontaneous
  Country: FR (occurrence: FR)
  Receive Date: 20150615
  Receipt Date: 20150615
  Transmission Date: 20150821
  Serious: Yes (Other)
  Sender: FDA-Public Use
  Company Number: FR-BAYER-2015-019232

PATIENT
  Age: 42 Year
  Sex: Female

DRUGS (1)
  1. MIRENA [Suspect]
     Active Substance: LEVONORGESTREL
     Dosage: 20 MCG/24HR, CONT
     Route: 015
     Dates: start: 201406, end: 201502

REACTIONS (3)
  - Hirsutism [None]
  - Blood testosterone increased [Recovering/Resolving]
  - Hypertrichosis [Recovering/Resolving]

NARRATIVE: CASE EVENT DATE: 201409
